FAERS Safety Report 6091266-3 (Version None)
Quarter: 2009Q1

REPORT INFORMATION
  Report Type: 
  Country: None (occurrence: None)
  Receive Date: 20090220
  Receipt Date: 20090220
  Transmission Date: 20090719
  Serious: Yes (Disabling)
  Sender: FDA-Public Use
  Company Number: None

PATIENT
  Sex: Male
  Weight: 81.6475 kg

DRUGS (7)
  1. CEXUIMAB BMS [Suspect]
     Indication: SQUAMOUS CELL CARCINOMA
     Dosage: 250 MG/M2
     Dates: start: 20090114, end: 20090217
  2. ALIMTA [Suspect]
     Indication: SQUAMOUS CELL CARCINOMA
     Dosage: 500MG/M2
     Dates: start: 20090121, end: 20090211
  3. OXYCONTIN [Concomitant]
  4. ZOFRAN [Concomitant]
  5. CIPROFLOXACIN HCL [Concomitant]
  6. EFFEXOR [Concomitant]
  7. COMPAZINE [Concomitant]

REACTIONS (3)
  - NAUSEA [None]
  - NO THERAPEUTIC RESPONSE [None]
  - PAIN [None]
